FAERS Safety Report 13951911 (Version 2)
Quarter: 2017Q4

REPORT INFORMATION
  Report Type: Report from Study
  Country: DE (occurrence: DE)
  Receive Date: 20170910
  Receipt Date: 20171005
  Transmission Date: 20180320
  Serious: Yes (Hospitalization)
  Sender: FDA-Public Use
  Company Number: PHHY2017DE132554

PATIENT
  Sex: Female
  Weight: 72 kg

DRUGS (28)
  1. METHYPRED [Concomitant]
     Dosage: 1000 MG, QW3
     Route: 042
     Dates: start: 20140203, end: 20140205
  2. OMEBETA [Concomitant]
     Indication: PROPHYLAXIS
     Dosage: 20 MG, QD
     Route: 048
     Dates: start: 20140520, end: 20140522
  3. OMEBETA [Concomitant]
     Dosage: 20 MG, QD
     Route: 048
     Dates: start: 20151019, end: 20151021
  4. ZOPICLONE [Concomitant]
     Active Substance: ZOPICLONE
     Indication: SLEEP DISORDER
     Dosage: 7.5 MG, QD
     Route: 048
     Dates: start: 20140520, end: 20140522
  5. ZOPICLONE [Concomitant]
     Active Substance: ZOPICLONE
     Dosage: 7.5 MG, QD
     Route: 048
     Dates: start: 20140929, end: 20141001
  6. METHYPRED [Concomitant]
     Indication: MULTIPLE SCLEROSIS RELAPSE
     Dosage: 1000 MG, QW3
     Route: 042
     Dates: start: 20130108, end: 20130110
  7. BACLOFEN. [Concomitant]
     Active Substance: BACLOFEN
     Indication: MUSCLE SPASTICITY
     Dosage: 12.5 MG, PRN
     Route: 048
  8. METHYPRED [Concomitant]
     Dosage: 2000 MG, QW
     Route: 042
     Dates: start: 20131104, end: 20131104
  9. METHYPRED [Concomitant]
     Dosage: 1000 MG, QW3
     Route: 042
     Dates: start: 20140929, end: 20141001
  10. METHYPRED [Concomitant]
     Dosage: 1000 MG, QW3
     Route: 042
     Dates: start: 20150126, end: 20150128
  11. METHYPRED [Concomitant]
     Dosage: 1000 MG, QW3
     Route: 042
     Dates: start: 20161102, end: 20161104
  12. ACIC [Concomitant]
     Active Substance: ACYCLOVIR
     Indication: INFECTION PROPHYLAXIS
     Dosage: 200 MG, BID
     Route: 048
     Dates: start: 20131104, end: 20131116
  13. OMEBETA [Concomitant]
     Dosage: 20 MG, QD
     Route: 048
     Dates: start: 20160315, end: 20160317
  14. OMEBETA [Concomitant]
     Dosage: 20 MG, QD
     Route: 048
     Dates: start: 20161102, end: 20161104
  15. TRIMIPRAMINE [Concomitant]
     Active Substance: TRIMIPRAMINE
     Indication: SLEEP DISORDER
  16. GILENYA [Suspect]
     Active Substance: FINGOLIMOD HYDROCHLORIDE
     Indication: MULTIPLE SCLEROSIS
     Dosage: 0.5 MG, QD
     Route: 048
     Dates: start: 20121113
  17. DEKRISTOL [Concomitant]
     Active Substance: CHOLECALCIFEROL
     Indication: VITAMIN D DEFICIENCY
     Dosage: 20000 MF, QW3
     Route: 048
     Dates: start: 20130108
  18. METHYPRED [Concomitant]
     Dosage: 1000 MG, QW3
     Route: 042
     Dates: start: 20151019, end: 20151021
  19. METHYPRED [Concomitant]
     Dosage: 1000 MG, QW3
     Route: 042
     Dates: start: 20160315, end: 20160317
  20. METHYPRED [Concomitant]
     Dosage: 1000 MG, QW3
     Route: 042
     Dates: start: 20150504, end: 20150506
  21. ACIC [Concomitant]
     Active Substance: ACYCLOVIR
     Dosage: 200 MG, BID
     Route: 048
     Dates: start: 20150504, end: 20150506
  22. ALPROZOLAM [Concomitant]
     Active Substance: ALPRAZOLAM
     Indication: DEPRESSION
     Dosage: 0.5 MG, QD
     Route: 048
     Dates: start: 20170307
  23. TRIMIPRAMINE [Concomitant]
     Active Substance: TRIMIPRAMINE
     Indication: MENTAL DISORDER
     Dosage: 50 MG, QD
     Route: 048
     Dates: start: 20161102
  24. METHYPRED [Concomitant]
     Dosage: 1000 MG, QW3
     Route: 042
     Dates: start: 20130513, end: 20130515
  25. STANGYL [Concomitant]
     Active Substance: TRIMIPRAMINE MALEATE
     Indication: SLEEP DISORDER
     Dosage: 20 DRP, PRN
     Route: 048
  26. METHYPRED [Concomitant]
     Dosage: 1000 MG, QW3
     Route: 042
     Dates: start: 20140520, end: 20140522
  27. ZOPICLONE [Concomitant]
     Active Substance: ZOPICLONE
     Dosage: 7.5 MG, QD
     Route: 048
     Dates: start: 20160315, end: 20160317
  28. ZOPICLONE [Concomitant]
     Active Substance: ZOPICLONE
     Dosage: 7.5 MG, QD
     Route: 048
     Dates: start: 20161102, end: 20161104

REACTIONS (2)
  - Epilepsy [Recovered/Resolved]
  - Loss of consciousness [Unknown]

NARRATIVE: CASE EVENT DATE: 20170622
